FAERS Safety Report 4676522-5 (Version None)
Quarter: 2005Q2

REPORT INFORMATION
  Report Type: 
  Country: None (occurrence: None)
  Receive Date: 20050525
  Receipt Date: 20050513
  Transmission Date: 20051028
  Serious: Yes (Other)
  Sender: FDA-Public Use
  Company Number: 2005074633

PATIENT
  Sex: Male

DRUGS (1)
  1. VFEND [Suspect]
     Indication: TRACHEITIS
     Dosage: 500 MG, INTRAVENOUS
     Route: 042
     Dates: start: 20050512

REACTIONS (5)
  - HYPERCAPNIA [None]
  - HYPOTENSION [None]
  - HYPOXIA [None]
  - SINUS TACHYCARDIA [None]
  - WHITE BLOOD CELL COUNT DECREASED [None]
